FAERS Safety Report 16639587 (Version 1)
Quarter: 2019Q3

REPORT INFORMATION
  Report Type: Report from Study
  Country: None (occurrence: US)
  Receive Date: 20190726
  Receipt Date: 20190726
  Transmission Date: 20191004
  Serious: Yes (Other)
  Sender: FDA-Public Use
  Company Number: US-ABBVIE-19K-163-2864611-00

PATIENT
  Sex: Female

DRUGS (4)
  1. SYNTHROID [Suspect]
     Active Substance: LEVOTHYROXINE SODIUM
     Dosage: DOSE CHANGED
     Route: 048
     Dates: start: 2019, end: 2019
  2. SYNTHROID [Suspect]
     Active Substance: LEVOTHYROXINE SODIUM
     Dosage: DOSE CHANGED
     Route: 048
     Dates: start: 2019
  3. SYNTHROID [Suspect]
     Active Substance: LEVOTHYROXINE SODIUM
     Indication: PRODUCT USED FOR UNKNOWN INDICATION
     Route: 048
     Dates: start: 1994, end: 2019
  4. SYNTHROID [Suspect]
     Active Substance: LEVOTHYROXINE SODIUM
     Dosage: DOSE CHANGED TO ORIGINAL DOSE
     Route: 048
     Dates: start: 2019, end: 2019

REACTIONS (4)
  - Hyperthyroidism [Unknown]
  - Blood test abnormal [Unknown]
  - Malaise [Unknown]
  - Basedow^s disease [Unknown]

NARRATIVE: CASE EVENT DATE: 2019
